FAERS Safety Report 4706949-4 (Version None)
Quarter: 2005Q3

REPORT INFORMATION
  Report Type: 
  Country: None (occurrence: None)
  Receive Date: 20050706
  Receipt Date: 20050616
  Transmission Date: 20060218
  Serious: Yes (Other)
  Sender: FDA-Public Use
  Company Number: PHEH2005US06867

PATIENT
  Age: 60 Year
  Sex: Female

DRUGS (1)
  1. LAMISIL [Suspect]
     Indication: NAIL TINEA
     Dosage: UNK, UNK
     Route: 048
     Dates: end: 20050421

REACTIONS (11)
  - AGEUSIA [None]
  - ANOSMIA [None]
  - BALANCE DISORDER [None]
  - CANDIDIASIS [None]
  - DEPRESSED MOOD [None]
  - DIZZINESS [None]
  - DYSGEUSIA [None]
  - IMMUNE SYSTEM DISORDER [None]
  - OEDEMA MUCOSAL [None]
  - URINARY TRACT INFECTION [None]
  - WEIGHT DECREASED [None]
